FAERS Safety Report 5390052-7 (Version None)
Quarter: 2007Q3

REPORT INFORMATION
  Report Type: 
  Country: None (occurrence: None)
  Receive Date: 20070718
  Receipt Date: 20070703
  Transmission Date: 20080115
  Serious: Yes (Hospitalization)
  Sender: FDA-Public Use
  Company Number: AT-GENENTECH-222858

PATIENT
  Sex: Female
  Weight: 69 kg

DRUGS (12)
  1. BEVACIZUMAB [Suspect]
     Indication: COLON CANCER
     Dosage: 7.5 MG/KG, Q3W
     Route: 042
     Dates: start: 20050909, end: 20060224
  2. OXALIPLATIN [Suspect]
     Indication: COLON CANCER
     Dosage: 130 MG/M2, Q3W
     Route: 042
     Dates: start: 20050909
  3. OXALIPLATIN [Suspect]
     Dosage: 101 MG/M2, UNK
  4. CAPECITABINE [Suspect]
     Indication: COLON CANCER
     Dosage: 1000 MG/M2, BID
     Route: 048
     Dates: start: 20050909
  5. CAPECITABINE [Suspect]
     Dosage: 750 MG/M2, UNK
  6. LOSARTAN POTASSIUM [Concomitant]
     Indication: DRUG USE FOR UNKNOWN INDICATION
     Dates: start: 20050901
  7. METFORMIN HCL [Concomitant]
     Indication: DRUG USE FOR UNKNOWN INDICATION
     Dates: start: 20050811
  8. SIMVASTATIN [Concomitant]
     Indication: DRUG USE FOR UNKNOWN INDICATION
     Dates: start: 20050811
  9. PARIET [Concomitant]
     Indication: DRUG USE FOR UNKNOWN INDICATION
     Dates: start: 20050811
  10. CONCOR [Concomitant]
     Dates: start: 20050811
  11. COZAAR [Concomitant]
     Indication: DRUG USE FOR UNKNOWN INDICATION
  12. LOVENOX [Concomitant]
     Indication: DRUG USE FOR UNKNOWN INDICATION
     Dates: start: 20051114

REACTIONS (1)
  - PALMAR-PLANTAR ERYTHRODYSAESTHESIA SYNDROME [None]
